FAERS Safety Report 17386449 (Version 1)
Quarter: 2020Q1

REPORT INFORMATION
  Report Type: Spontaneous
  Country: AU (occurrence: AU)
  Receive Date: 20200206
  Receipt Date: 20200206
  Transmission Date: 20200409
  Serious: Yes (Other)
  Sender: FDA-Public Use
  Company Number: AU-PFIZER INC-2020044102

PATIENT
  Sex: Male

DRUGS (1)
  1. SILDENAFIL CITRATE. [Suspect]
     Active Substance: SILDENAFIL CITRATE
     Dosage: UNK

REACTIONS (5)
  - Cardiac failure [Unknown]
  - Nasopharyngitis [Unknown]
  - Cardiac sarcoidosis [Unknown]
  - Dyspnoea [Unknown]
  - Lower respiratory tract infection [Unknown]
